FAERS Safety Report 9772132 (Version 2)
Quarter: 2014Q1

REPORT INFORMATION
  Report Type: Spontaneous
  Country: IT (occurrence: IT)
  Receive Date: 20131219
  Receipt Date: 20140106
  Transmission Date: 20141002
  Serious: Yes (Hospitalization, Other)
  Sender: FDA-Public Use
  Company Number: IT-JNJFOC-20131208501

PATIENT
  Age: 75 Year
  Sex: Male

DRUGS (14)
  1. RISPERDAL [Suspect]
     Indication: PRODUCT USED FOR UNKNOWN INDICATION
     Route: 048
     Dates: start: 20130605, end: 20130904
  2. LASIX [Suspect]
     Indication: DIURETIC THERAPY
     Route: 048
     Dates: start: 20130101, end: 20130904
  3. CIPROFLOXACIN [Suspect]
     Indication: URINARY TRACT INFECTION
     Route: 048
     Dates: start: 20130902, end: 20130903
  4. ZOLOFT [Suspect]
     Indication: DEPRESSION
     Route: 048
     Dates: start: 20130601, end: 20130904
  5. MIRTAZAPINE [Suspect]
     Indication: DEPRESSION
     Route: 048
     Dates: start: 20130601, end: 20130904
  6. DIBASE [Concomitant]
     Indication: PRODUCT USED FOR UNKNOWN INDICATION
     Dosage: 10.000 IU/ML
     Route: 065
  7. TOP-NITRO [Concomitant]
     Indication: PRODUCT USED FOR UNKNOWN INDICATION
     Route: 065
  8. LANSOX [Concomitant]
     Indication: PRODUCT USED FOR UNKNOWN INDICATION
     Route: 065
  9. HUMULIN R [Concomitant]
     Indication: PRODUCT USED FOR UNKNOWN INDICATION
     Dosage: 100 IU/ML
     Route: 065
  10. SERETIDE [Concomitant]
     Indication: PRODUCT USED FOR UNKNOWN INDICATION
     Dosage: 25/250 UG, PRESSURIZED SUSPENSION
     Route: 065
  11. SPIRIVA [Concomitant]
     Indication: PRODUCT USED FOR UNKNOWN INDICATION
     Route: 065
  12. COUMADIN [Concomitant]
     Indication: PRODUCT USED FOR UNKNOWN INDICATION
     Route: 065
  13. POTASSIUM CANRENOATE [Concomitant]
     Indication: PRODUCT USED FOR UNKNOWN INDICATION
     Route: 065
  14. TORVAST [Concomitant]
     Indication: PRODUCT USED FOR UNKNOWN INDICATION
     Route: 065

REACTIONS (8)
  - Disorientation [Recovering/Resolving]
  - Hypotension [Recovering/Resolving]
  - Speech disorder [Recovering/Resolving]
  - Syncope [Recovering/Resolving]
  - Sopor [Recovering/Resolving]
  - Faecaloma [Unknown]
  - Abdominal distension [Unknown]
  - Haemoglobin decreased [Unknown]
